FAERS Safety Report 8849577 (Version 1)
Quarter: 2012Q4

REPORT INFORMATION
  Report Type: Spontaneous
  Country: US (occurrence: None)
  Receive Date: 20121018
  Receipt Date: 20121018
  Transmission Date: 20130627
  Serious: Yes (Hospitalization)
  Sender: FDA-Public Use
  Company Number: None

PATIENT
  Age: 64 Year
  Sex: Female
  Weight: 114.8 kg

DRUGS (1)
  1. XARELTO [Suspect]
     Indication: TOTAL KNEE REPLACEMENT
     Route: 048
     Dates: start: 20120925, end: 20121008

REACTIONS (1)
  - Pulmonary embolism [None]
